FAERS Safety Report 18025770 (Version 2)
Quarter: 2020Q3

REPORT INFORMATION
  Report Type: Spontaneous
  Country: US (occurrence: US)
  Receive Date: 20200715
  Receipt Date: 20200825
  Transmission Date: 20201103
  Serious: No
  Sender: FDA-Public Use
  Company Number: US-ASTRAZENECA-2020SE78676

PATIENT
  Sex: Male
  Weight: 74.8 kg

DRUGS (4)
  1. BEVESPI AEROSPHERE [Suspect]
     Active Substance: FORMOTEROL FUMARATE\GLYCOPYRROLATE
     Indication: EMPHYSEMA
     Dosage: 2.0DF UNKNOWN
     Route: 055
     Dates: start: 202006
  2. ELLIPTA [Concomitant]
     Indication: EMPHYSEMA
     Dates: start: 201912, end: 202005
  3. SYMBICORT [Suspect]
     Active Substance: BUDESONIDE\FORMOTEROL FUMARATE DIHYDRATE
     Indication: EMPHYSEMA
     Dosage: UNKNOWN DOSE AND FREQUENCY UNKNOWN
     Route: 055
     Dates: start: 201912, end: 202005
  4. BEVESPI AEROSPHERE [Suspect]
     Active Substance: FORMOTEROL FUMARATE\GLYCOPYRROLATE
     Indication: EMPHYSEMA
     Dosage: 10.7G UNKNOWN
     Route: 055
     Dates: start: 20200421

REACTIONS (4)
  - Ear haemorrhage [Unknown]
  - Tinnitus [Unknown]
  - Ear infection [Unknown]
  - Pharyngitis [Unknown]
